FAERS Safety Report 8757777 (Version 1)
Quarter: 2012Q4

REPORT INFORMATION
  Report Type: 
  Country: MX (occurrence: MX)
  Receive Date: 20120828
  Receipt Date: 20120828
  Transmission Date: 20130627
  Serious: Yes (Other)
  Sender: FDA-Public Use
  Company Number: PHHY2012MX073702

PATIENT
  Age: 85 Year
  Sex: Female

DRUGS (2)
  1. CO-DIOVAN [Suspect]
     Indication: HYPERTENSION
     Dosage: UNK UKN, UNK
     Dates: end: 201203
  2. LYRICA [Concomitant]

REACTIONS (4)
  - Cholelithiasis [Unknown]
  - Herpes virus infection [Unknown]
  - Visual impairment [Unknown]
  - Hypotension [Unknown]
